FAERS Safety Report 8789344 (Version 1)
Quarter: 2012Q4

REPORT INFORMATION
  Report Type: Spontaneous
  Country: US (occurrence: None)
  Receive Date: 20120904
  Receipt Date: 20120904
  Transmission Date: 20130627
  Serious: Yes (Other)
  Sender: FDA-Public Use
  Company Number: JPI-P-024397

PATIENT
  Age: 30 Year
  Sex: Female

DRUGS (5)
  1. XYREM [Suspect]
     Indication: NARCOLEPSY
     Dosage: 4.5 GM (2.25 GM, 2 IN 1 D), ORAL
     Route: 048
     Dates: start: 20070924
  2. XYREM [Suspect]
     Indication: NARCOLEPSY
     Dosage: (UNSPECIFIED DOSE CHANGE), ORAL
     Route: 048
  3. XYREM [Suspect]
     Indication: NARCOLEPSY
     Dosage: 8 GM (4 GM, 2 IN 1 D)
     Route: 048
     Dates: start: 20110708
  4. CLONAZEPAM [Suspect]
     Indication: AUTONOMIC NEUROPATHY
     Dates: end: 201205
  5. CLONAZEPAM [Suspect]
     Indication: AUTONOMIC NEUROPATHY
     Dates: start: 201208

REACTIONS (21)
  - Road traffic accident [None]
  - Post-traumatic neck syndrome [None]
  - Wrist fracture [None]
  - Neuralgia [None]
  - Condition aggravated [None]
  - Insomnia [None]
  - Initial insomnia [None]
  - Nausea [None]
  - Dizziness [None]
  - Pain in extremity [None]
  - Muscle spasms [None]
  - Sinusitis [None]
  - Feeling abnormal [None]
  - Decreased appetite [None]
  - Weight decreased [None]
  - Palpitations [None]
  - Dyspnoea [None]
  - Migraine [None]
  - Tympanic membrane perforation [None]
  - Ear infection [None]
  - Bronchitis [None]
